FAERS Safety Report 9246722 (Version 1)
Quarter: 2013Q2

REPORT INFORMATION
  Report Type: Spontaneous
  Country: US (occurrence: US)
  Receive Date: 20130422
  Receipt Date: 20130422
  Transmission Date: 20140414
  Serious: Yes (Hospitalization)
  Sender: FDA-Public Use
  Company Number: US-LUNDBECK-DKLU1090052

PATIENT
  Age: 1 Year
  Sex: Male
  Weight: 11 kg

DRUGS (7)
  1. SABRIL (FOR ORAL SOLUTION) [Suspect]
     Indication: INFANTILE SPASMS
     Dates: start: 20130124, end: 20130322
  2. SABRIL (FOR ORAL SOLUTION) [Suspect]
     Indication: TUBEROUS SCLEROSIS
     Dates: start: 20130124, end: 20130322
  3. SABRIL (FOR ORAL SOLUTION) [Suspect]
     Dates: start: 201301
  4. SABRIL (FOR ORAL SOLUTION) [Suspect]
     Dates: start: 20130220
  5. PHENOBARBITAL [Suspect]
     Indication: GRAND MAL CONVULSION
     Route: 048
  6. PHENOBARBITAL [Suspect]
     Indication: COMPLEX PARTIAL SEIZURES
     Route: 048
  7. KEPPRA [Concomitant]
     Indication: COMPLEX PARTIAL SEIZURES
     Route: 048
     Dates: start: 20121110

REACTIONS (5)
  - Grand mal convulsion [Unknown]
  - Convulsion [Unknown]
  - Infantile spasms [Recovered/Resolved]
  - Sedation [Unknown]
  - Drug ineffective [Unknown]
